FAERS Safety Report 10172800 (Version 1)
Quarter: 2014Q2

REPORT INFORMATION
  Report Type: Spontaneous
  Country: US (occurrence: US)
  Receive Date: 20140515
  Receipt Date: 20140515
  Transmission Date: 20141212
  Serious: Yes (Hospitalization)
  Sender: FDA-Public Use
  Company Number: US-GLAXOSMITHKLINE-A1019112A

PATIENT
  Age: 73 Year
  Sex: Female

DRUGS (7)
  1. ADVAIR HFA [Suspect]
     Indication: ASTHMA
     Dosage: 1PUFF TWICE PER DAY
     Route: 055
     Dates: start: 20120827
  2. VENTOLIN [Suspect]
     Indication: ASTHMA
     Route: 055
  3. SINGULAIR [Concomitant]
  4. LORAZEPAM [Concomitant]
  5. PRILOSEC [Concomitant]
  6. VITAMINS [Concomitant]
  7. NEBULIZER [Concomitant]

REACTIONS (3)
  - Pneumonia [Unknown]
  - Malaise [Unknown]
  - Injury [Unknown]
